FAERS Safety Report 4835653-7 (Version None)
Quarter: 2005Q4

REPORT INFORMATION
  Report Type: 
  Country: None (occurrence: None)
  Receive Date: 20051121
  Receipt Date: 20051108
  Transmission Date: 20060501
  Serious: Yes (Other)
  Sender: FDA-Public Use
  Company Number: 2005145777

PATIENT
  Sex: Male

DRUGS (3)
  1. ATARAX [Suspect]
     Indication: ILL-DEFINED DISORDER
  2. CARBAMAZEPINE [Suspect]
     Indication: EPILEPSY
     Dosage: 800 MG
  3. VALPROIC ACID [Suspect]
     Indication: EPILEPSY
     Dosage: 3 GRAM

REACTIONS (12)
  - ANTICONVULSANT DRUG LEVEL ABOVE THERAPEUTIC [None]
  - ANTICONVULSANT DRUG LEVEL BELOW THERAPEUTIC [None]
  - DIZZINESS [None]
  - DRUG ABUSER [None]
  - DRUG INTERACTION [None]
  - DRUG TOXICITY [None]
  - DYSARTHRIA [None]
  - FALSE POSITIVE LABORATORY RESULT [None]
  - MULTIPLE DRUG OVERDOSE [None]
  - SOMNOLENCE [None]
  - STATUS EPILEPTICUS [None]
  - TREATMENT NONCOMPLIANCE [None]
